FAERS Safety Report 12783974 (Version 2)
Quarter: 2016Q4

REPORT INFORMATION
  Report Type: Spontaneous
  Country: BD (occurrence: BD)
  Receive Date: 20160927
  Receipt Date: 20161012
  Transmission Date: 20170207
  Serious: Yes (Hospitalization)
  Sender: FDA-Public Use
  Company Number: BD-NOVOPROD-509272

PATIENT
  Age: 60 Year
  Sex: Male

DRUGS (2)
  1. MIXTARD HUMAN 70/30 [Suspect]
     Active Substance: INSULIN HUMAN
     Indication: DIABETES MELLITUS
     Dosage: 30+00+28
     Route: 058
     Dates: end: 20160902
  2. MIXTARD 50 PENFILL [Suspect]
     Active Substance: INSULIN HUMAN
     Indication: DIABETES MELLITUS
     Dosage: UNK
     Route: 065
     Dates: start: 2012

REACTIONS (3)
  - Wrong drug administered [Unknown]
  - Injection site induration [Not Recovered/Not Resolved]
  - Injection site infection [Unknown]

NARRATIVE: CASE EVENT DATE: 20160829
